FAERS Safety Report 6789549-4 (Version None)
Quarter: 2010Q2

REPORT INFORMATION
  Report Type: 
  Country: None (occurrence: None)
  Receive Date: 20100624
  Receipt Date: 20100617
  Transmission Date: 20101027
  Serious: Yes (Other)
  Sender: FDA-Public Use
  Company Number: US-BIOGENIDEC-2010BI011049

PATIENT
  Age: 40 Year
  Sex: Female
  Weight: 73 kg

DRUGS (3)
  1. TYSABRI [Suspect]
     Indication: MULTIPLE SCLEROSIS
     Route: 042
     Dates: start: 20100219
  2. EPIPEN [Concomitant]
     Indication: ANAPHYLACTIC REACTION
  3. PREMARIN [Concomitant]
     Indication: HYSTERECTOMY

REACTIONS (5)
  - ANAPHYLACTIC REACTION [None]
  - FATIGUE [None]
  - HEADACHE [None]
  - HYPERSENSITIVITY [None]
  - MUSCULAR WEAKNESS [None]
